FAERS Safety Report 12897050 (Version 2)
Quarter: 2016Q4

REPORT INFORMATION
  Report Type: Spontaneous
  Country: US (occurrence: US)
  Receive Date: 20161031
  Receipt Date: 20161101
  Transmission Date: 20170207
  Serious: No
  Sender: FDA-Public Use
  Company Number: US-PFIZER INC-2016503644

PATIENT
  Age: 72 Year
  Sex: Female

DRUGS (1)
  1. KERYDIN [Suspect]
     Active Substance: TAVABOROLE
     Indication: FUNGAL SKIN INFECTION
     Dosage: UNK

REACTIONS (2)
  - Erythema [Unknown]
  - Skin discolouration [Unknown]
